FAERS Safety Report 15266306 (Version 1)
Quarter: 2018Q3

REPORT INFORMATION
  Report Type: Spontaneous
  Country: ES (occurrence: ES)
  Receive Date: 20180810
  Receipt Date: 20180810
  Transmission Date: 20181010
  Serious: Yes (Hospitalization)
  Sender: FDA-Public Use
  Company Number: ES-PFIZER INC-2018317714

PATIENT
  Age: 58 Year
  Sex: Male

DRUGS (2)
  1. ACFOL [Concomitant]
     Active Substance: FOLIC ACID
     Dosage: 30 MG/ WEEK
     Route: 048
     Dates: start: 2014
  2. METHOTREXATE SODIUM. [Suspect]
     Active Substance: METHOTREXATE SODIUM
     Indication: RHEUMATOID ARTHRITIS
     Dosage: 2N MG/ WEEK
     Route: 048
     Dates: start: 2014

REACTIONS (2)
  - Biliary colic [Recovered/Resolved]
  - Cholelithiasis [Recovered/Resolved]

NARRATIVE: CASE EVENT DATE: 20171122
